FAERS Safety Report 17463830 (Version 1)
Quarter: 2020Q1

REPORT INFORMATION
  Report Type: Spontaneous
  Country: US (occurrence: US)
  Receive Date: 20200226
  Receipt Date: 20200226
  Transmission Date: 20200409
  Serious: Yes (Other)
  Sender: FDA-Public Use
  Company Number: US-STRIDES ARCOLAB LIMITED-2020SP001795

PATIENT
  Age: 31 Year
  Sex: Male

DRUGS (1)
  1. TRIAMCINOLONE ACETONIDE. [Suspect]
     Active Substance: TRIAMCINOLONE ACETONIDE
     Indication: ACNE
     Dosage: UNK
     Route: 026

REACTIONS (3)
  - Perivascular dermatitis [Unknown]
  - Granulomatous dermatitis [Unknown]
  - Foreign body reaction [Unknown]
